FAERS Safety Report 9115659 (Version 1)
Quarter: 2013Q1

REPORT INFORMATION
  Report Type: Spontaneous
  Country: US (occurrence: US)
  Receive Date: 20130225
  Receipt Date: 20130225
  Transmission Date: 20140127
  Serious: No
  Sender: FDA-Public Use
  Company Number: US-BRISTOL-MYERS SQUIBB COMPANY-17083742

PATIENT
  Age: 67 Year
  Sex: Female

DRUGS (3)
  1. KENALOG-10 INJ [Suspect]
  2. LEVOXYL [Concomitant]
  3. PRAVASTATIN SODIUM [Concomitant]

REACTIONS (1)
  - Rash macular [Unknown]
